FAERS Safety Report 26070087 (Version 1)
Quarter: 2025Q4

REPORT INFORMATION
  Report Type: Spontaneous
  Country: GB (occurrence: GB)
  Receive Date: 20251120
  Receipt Date: 20251120
  Transmission Date: 20260118
  Serious: Yes (Other)
  Sender: WAYLIS THERAPEUTICS
  Company Number: GB-WAYLIS-2025-UK-000151

PATIENT
  Age: 45 Year
  Sex: Female

DRUGS (7)
  1. RABEPRAZOLE SODIUM [Suspect]
     Active Substance: RABEPRAZOLE SODIUM
     Indication: Product used for unknown indication
     Dosage: DOSE AND FREQUENCY UNKNOWN
     Route: 048
  2. SUMATRIPTAN [Suspect]
     Active Substance: SUMATRIPTAN
     Dosage: DOSE AND FREQUENCY UNKNOWN
  3. COCODAMOL [Suspect]
     Active Substance: ACETAMINOPHEN\CODEINE PHOSPHATE
     Dosage: DOSE AND FREQUENCY UNKNOWN
  4. QUININE [Suspect]
     Active Substance: QUININE
     Dosage: (4.8 GRAM(S)); FREQUENCY UNKNOWN
  5. PIZOTYLINE [Suspect]
     Active Substance: PIZOTYLINE
     Dosage: DOSE AND FREQUENCY UNKNOWN
  6. DOMPERIDONE [Suspect]
     Active Substance: DOMPERIDONE
     Dosage: DOSE AND FREQUENCY UNKNOWN
  7. DULOXETINE [Suspect]
     Active Substance: DULOXETINE
     Dosage: DOSE AND FREQUENCY UNKNOWN

REACTIONS (8)
  - Blindness [Unknown]
  - Macular oedema [Unknown]
  - Retinal vascular disorder [Unknown]
  - Macular degeneration [Unknown]
  - Intentional overdose [Unknown]
  - Retinogram abnormal [Unknown]
  - Visual pathway disorder [Unknown]
  - Retinal disorder [Unknown]
